FAERS Safety Report 14329849 (Version 2)
Quarter: 2018Q3

REPORT INFORMATION
  Report Type: Spontaneous
  Country: US (occurrence: US)
  Receive Date: 20171227
  Receipt Date: 20180719
  Transmission Date: 20181010
  Serious: Yes (Hospitalization, Other)
  Sender: FDA-Public Use
  Company Number: US-SA-2017SA257819

PATIENT
  Age: 67 Year
  Sex: Male

DRUGS (14)
  1. FLUOROURACIL. [Suspect]
     Active Substance: FLUOROURACIL
     Dosage: 2400 MG/M2 (46?HOURS CONTINOUS INFUSION)
  2. IRINOTECAN [Suspect]
     Active Substance: IRINOTECAN
     Indication: COLORECTAL ADENOCARCINOMA
     Dosage: 180 MG/M2, QCY
  3. OXALIPLATIN. [Suspect]
     Active Substance: OXALIPLATIN
     Indication: COLORECTAL ADENOCARCINOMA
     Dosage: UNK UNK,QCY
     Route: 065
  4. CARVEDILOL. [Concomitant]
     Active Substance: CARVEDILOL
     Dosage: UNK UNK,UNK
     Route: 065
  5. PROCHLORPERAZINE. [Concomitant]
     Active Substance: PROCHLORPERAZINE
     Dosage: UNK UNK,UNK
     Route: 065
  6. FLUOROURACIL. [Suspect]
     Active Substance: FLUOROURACIL
     Dosage: 400 MG/M2
  7. LISINOPRIL. [Concomitant]
     Active Substance: LISINOPRIL
     Dosage: UNK UNK,UNK
     Route: 065
  8. ONDANSETRON [Concomitant]
     Active Substance: ONDANSETRON
     Dosage: UNK UNK,UNK
     Route: 065
  9. BEVACIZUMAB. [Suspect]
     Active Substance: BEVACIZUMAB
     Dosage: 450 MG
  10. WARFARIN [Concomitant]
     Active Substance: WARFARIN
     Indication: PULMONARY EMBOLISM
     Dosage: UNK UNK,UNK
     Route: 065
  11. FLUOROURACIL. [Suspect]
     Active Substance: FLUOROURACIL
     Indication: COLORECTAL ADENOCARCINOMA
     Dosage: UNK UNK,QCY
     Route: 065
  12. BEVACIZUMAB. [Suspect]
     Active Substance: BEVACIZUMAB
     Indication: COLORECTAL ADENOCARCINOMA
     Dosage: UNK UNK,QCY (FOLFOX)
     Route: 065
  13. FOLINIC ACID [Suspect]
     Active Substance: LEUCOVORIN
     Indication: COLORECTAL ADENOCARCINOMA
     Dosage: UNK UNK,QCY(FOLFOX)
     Route: 065
  14. FOLINIC ACID [Suspect]
     Active Substance: LEUCOVORIN
     Dosage: 400 MG/M2( FOLFIRI)

REACTIONS (9)
  - Dysarthria [Recovering/Resolving]
  - Vomiting [Unknown]
  - Confusional state [Recovering/Resolving]
  - Renal impairment [Unknown]
  - Agitation [Recovering/Resolving]
  - Dehydration [Unknown]
  - Nausea [Unknown]
  - Leukoencephalopathy [Recovering/Resolving]
  - Ataxia [Recovering/Resolving]
